FAERS Safety Report 5588774-8 (Version None)
Quarter: 2008Q1

REPORT INFORMATION
  Report Type: 
  Country: None (occurrence: None)
  Receive Date: 20080111
  Receipt Date: 20080107
  Transmission Date: 20080703
  Serious: Yes (Life-Threatening, Hospitalization)
  Sender: FDA-Public Use
  Company Number: B0501325A

PATIENT
  Age: 33 Year
  Sex: Female
  Weight: 65.5 kg

DRUGS (1)
  1. TRIZIVIR [Suspect]
     Indication: ANTIVIRAL PROPHYLAXIS
     Dosage: 1TAB TWICE PER DAY
     Route: 048
     Dates: start: 20070803, end: 20071217

REACTIONS (28)
  - ABDOMINAL PAIN [None]
  - ABDOMINAL PAIN UPPER [None]
  - CARDIAC MURMUR [None]
  - CARDIOMEGALY [None]
  - CARDIOMYOPATHY [None]
  - CHILLS [None]
  - DIARRHOEA [None]
  - DILATATION VENTRICULAR [None]
  - DYSPNOEA [None]
  - FATIGUE [None]
  - GALLBLADDER ENLARGEMENT [None]
  - GASTRITIS [None]
  - HEPATIC ENZYME INCREASED [None]
  - HEPATOTOXICITY [None]
  - HYPERHIDROSIS [None]
  - HYPOAESTHESIA [None]
  - LACTIC ACIDOSIS [None]
  - LEFT ATRIAL DILATATION [None]
  - MALAISE [None]
  - MITOCHONDRIAL CYTOPATHY [None]
  - MITRAL VALVE STENOSIS [None]
  - MYALGIA [None]
  - NAUSEA [None]
  - PALPITATIONS [None]
  - PANCREATITIS [None]
  - PYREXIA [None]
  - TACHYCARDIA [None]
  - VOMITING [None]
